FAERS Safety Report 12284555 (Version 1)
Quarter: 2016Q2

REPORT INFORMATION
  Report Type: Spontaneous
  Country: US (occurrence: US)
  Receive Date: 20160420
  Receipt Date: 20160420
  Transmission Date: 20160815
  Serious: No
  Sender: FDA-Public Use
  Company Number: US-TEVA-633429USA

PATIENT
  Sex: Male
  Weight: 88.53 kg

DRUGS (1)
  1. NICOTINIC ACID [Suspect]
     Active Substance: NIACIN
     Route: 065

REACTIONS (1)
  - Vomiting [Recovered/Resolved]
